FAERS Safety Report 9385833 (Version 2)
Quarter: 2013Q3

REPORT INFORMATION
  Report Type: Spontaneous
  Country: US (occurrence: US)
  Receive Date: 20130705
  Receipt Date: 20130814
  Transmission Date: 20140515
  Serious: Yes (Hospitalization)
  Sender: FDA-Public Use
  Company Number: US-B.I. PHARMACEUTICALS,INC./RIDGEFIELD-2013-BI-19168BP

PATIENT
  Sex: Female
  Weight: 68.04 kg

DRUGS (9)
  1. PRADAXA [Suspect]
     Indication: ATRIAL FIBRILLATION
     Dosage: 300 MG
     Dates: start: 20110503, end: 20110827
  2. OMEPRAZOLE [Concomitant]
  3. ZOCOR [Concomitant]
     Dosage: 20 MG
     Route: 048
  4. LEVOTHYROXINE [Concomitant]
     Dosage: 50 MCG
     Route: 048
  5. CALCIUM WITH VITAMIN D [Concomitant]
  6. ALLOPURINOL [Concomitant]
  7. COREG [Concomitant]
     Dosage: 25 MG
     Route: 048
  8. TIMOLOL [Concomitant]
  9. LASIX [Concomitant]
     Dosage: 40 MG
     Route: 048

REACTIONS (6)
  - Gastrointestinal haemorrhage [Unknown]
  - Hypovolaemic shock [Unknown]
  - Renal failure acute [Unknown]
  - Coagulopathy [Unknown]
  - Haemorrhagic anaemia [Unknown]
  - Renal failure acute [Unknown]
